FAERS Safety Report 25002866 (Version 1)
Quarter: 2025Q1

REPORT INFORMATION
  Report Type: Spontaneous
  Country: US (occurrence: US)
  Receive Date: 20250224
  Receipt Date: 20250224
  Transmission Date: 20250409
  Serious: Yes (Death, Hospitalization, Other)
  Sender: SPECGX
  Company Number: US-SPECGX-T202500104

PATIENT
  Age: 41 Year
  Sex: Male

DRUGS (4)
  1. FENTANYL CITRATE [Suspect]
     Active Substance: FENTANYL CITRATE
     Indication: Product used for unknown indication
     Route: 048
  2. FENTANYL CITRATE [Suspect]
     Active Substance: FENTANYL CITRATE
     Route: 051
  3. ALCOHOL [Suspect]
     Active Substance: ALCOHOL
     Indication: Product used for unknown indication
     Route: 048
  4. ALCOHOL [Suspect]
     Active Substance: ALCOHOL
     Route: 051

REACTIONS (15)
  - Drug abuse [Fatal]
  - Analgesic drug level increased [Fatal]
  - Accidental overdose [Fatal]
  - Pulse absent [Unknown]
  - Brain injury [Unknown]
  - Unresponsive to stimuli [Unknown]
  - Apnoeic attack [Unknown]
  - Cardiac arrest [Unknown]
  - Endotracheal intubation [Unknown]
  - Mechanical ventilation [Unknown]
  - Atrial fibrillation [Unknown]
  - Resuscitation [Unknown]
  - Hypotension [Unknown]
  - Substance use [Unknown]
  - Incorrect route of product administration [Unknown]

NARRATIVE: CASE EVENT DATE: 20230101
